FAERS Safety Report 8248579-6 (Version None)
Quarter: 2012Q1

REPORT INFORMATION
  Report Type: 
  Country: None (occurrence: None)
  Receive Date: 20120330
  Receipt Date: 20120322
  Transmission Date: 20120608
  Serious: Yes (Other)
  Sender: FDA-Public Use
  Company Number: US-GILEAD-2012-0052207

PATIENT
  Sex: Male

DRUGS (2)
  1. VIREAD [Suspect]
     Indication: HEPATITIS B
     Dosage: 300 MG, QD
     Route: 048
     Dates: start: 20110701
  2. HEPSERA [Suspect]
     Indication: HEPATITIS B
     Dosage: UNK
     Dates: start: 20070901

REACTIONS (7)
  - MYALGIA [None]
  - PAIN IN EXTREMITY [None]
  - EPIGASTRIC DISCOMFORT [None]
  - BACK PAIN [None]
  - BLOOD CREATINE PHOSPHOKINASE ABNORMAL [None]
  - DRUG RESISTANCE [None]
  - MUSCULOSKELETAL STIFFNESS [None]
